FAERS Safety Report 14958996 (Version 1)
Quarter: 2018Q2

REPORT INFORMATION
  Report Type: Spontaneous
  Country: FR (occurrence: FR)
  Receive Date: 20180531
  Receipt Date: 20180531
  Transmission Date: 20180711
  Serious: Yes (Hospitalization)
  Sender: FDA-Public Use
  Company Number: FR-TEVA-2018-FR-898914

PATIENT
  Age: 59 Year
  Sex: Male

DRUGS (6)
  1. EMEND [Concomitant]
     Active Substance: APREPITANT
     Route: 048
     Dates: start: 201801
  2. ONDANSETRON [Concomitant]
     Active Substance: ONDANSETRON
     Dosage: 16 MILLIGRAM DAILY;
     Route: 048
     Dates: start: 201801
  3. OXALIPLATIN. [Suspect]
     Active Substance: OXALIPLATIN
     Route: 042
     Dates: start: 20180109
  4. SILODOSINE [Concomitant]
     Active Substance: SILODOSIN
     Route: 048
  5. OXALIPLATIN. [Suspect]
     Active Substance: OXALIPLATIN
     Indication: COLON CANCER
     Route: 042
  6. DOMPERIDONE [Concomitant]
     Active Substance: DOMPERIDONE
     Dosage: 30 MILLIGRAM DAILY;
     Route: 048
     Dates: start: 201801

REACTIONS (2)
  - Hepatocellular injury [Recovering/Resolving]
  - Neutropenia [Recovered/Resolved]

NARRATIVE: CASE EVENT DATE: 20180113
